FAERS Safety Report 6243395-9 (Version None)
Quarter: 2009Q2

REPORT INFORMATION
  Report Type: 
  Country: None (occurrence: None)
  Receive Date: 20090622
  Receipt Date: 20090622
  Transmission Date: 20091009
  Serious: No
  Sender: FDA-Public Use
  Company Number: None

PATIENT
  Age: 53 Year
  Sex: Female
  Weight: 68.0396 kg

DRUGS (2)
  1. ZICAM COLD REMEDY 20 MEDICATED SWABS HOMEOPATHIC ZICAM LLC SUB. OF MAT [Suspect]
     Indication: NASOPHARYNGITIS
     Dosage: 4 TIMES PER DAY 5 DAYS; 2 TIMES PER DAY 7 DAYS
     Dates: start: 20090526, end: 20090530
  2. ZICAM COLD REMEDY 20 MEDICATED SWABS HOMEOPATHIC ZICAM LLC SUB. OF MAT [Suspect]
     Indication: NASOPHARYNGITIS
     Dosage: 4 TIMES PER DAY 5 DAYS; 2 TIMES PER DAY 7 DAYS
     Dates: start: 20090531, end: 20090606

REACTIONS (3)
  - AGEUSIA [None]
  - ANOSMIA [None]
  - HYPOGEUSIA [None]
